FAERS Safety Report 8077639-8 (Version None)
Quarter: 2012Q1

REPORT INFORMATION
  Report Type: 
  Country: None (occurrence: None)
  Receive Date: 20120123
  Receipt Date: 20120109
  Transmission Date: 20120608
  Serious: Yes (Death, Hospitalization)
  Sender: FDA-Public Use
  Company Number: JPI-P-014774

PATIENT
  Age: 54 Year
  Sex: Male

DRUGS (10)
  1. ADDERALL 5 [Concomitant]
  2. CARVEDILOL [Concomitant]
  3. PAROXETINE [Concomitant]
  4. LITHIUM CARBONATE [Concomitant]
  5. FUROSEMIDE [Concomitant]
  6. RAMIPRIL [Concomitant]
  7. PROTRIPTYLINE [Concomitant]
  8. XYREM [Suspect]
     Indication: NARCOLEPSY
     Dosage: 4.5 GM (2.25 GM,2 IN 1 D),ORAL ; 6 GM (3 GM,2 IN 1 D),ORAL
     Route: 048
     Dates: start: 20021206, end: 20030415
  9. XYREM [Suspect]
     Indication: NARCOLEPSY
     Dosage: 4.5 GM (2.25 GM,2 IN 1 D),ORAL ; 6 GM (3 GM,2 IN 1 D),ORAL
     Route: 048
     Dates: start: 20030416, end: 20050421
  10. MODAFINIL [Concomitant]

REACTIONS (4)
  - CARDIOMEGALY [None]
  - SUICIDE ATTEMPT [None]
  - ASPHYXIA [None]
  - PULMONARY EMBOLISM [None]
